FAERS Safety Report 8992802 (Version 3)
Quarter: 2013Q1

REPORT INFORMATION
  Report Type: Spontaneous
  Country: JP (occurrence: JP)
  Receive Date: 20130102
  Receipt Date: 20130118
  Transmission Date: 20140127
  Serious: Yes (Hospitalization, Other)
  Sender: FDA-Public Use
  Company Number: JP-009507513-1212JPN011023

PATIENT
  Age: 38 Year
  Sex: Female
  Weight: 50 kg

DRUGS (8)
  1. MONTELUKAST SODIUM [Suspect]
     Indication: ASTHMA
     Dosage: 10 MG, QD
     Route: 048
  2. ADOAIR [Concomitant]
     Indication: ASTHMA
     Dosage: 500 MICROGRAM, BID
     Route: 065
  3. PREDNISOLONE [Concomitant]
     Indication: ASTHMA
     Dosage: 20 MG, UNK
     Route: 048
     Dates: start: 1993
  4. PREDNISOLONE [Concomitant]
     Dosage: 10 MG, QD
     Route: 048
     Dates: start: 200912
  5. PREDNISOLONE [Concomitant]
     Dosage: UNK
     Route: 048
     Dates: start: 20100130
  6. THEOPHYLLINE [Concomitant]
     Indication: ASTHMA
     Dosage: 200 MG, BID
  7. XOLAIR [Concomitant]
     Indication: ASTHMA
     Dosage: DIVIDED DOSE FREQUENCY UNKNOWN
     Route: 058
     Dates: start: 20090804, end: 200912
  8. ALVESCO [Concomitant]
     Indication: ASTHMA
     Dosage: DIVIDED DOSE FREQUENCY UNKNOWN
     Dates: start: 200912

REACTIONS (4)
  - Premature delivery [Recovered/Resolved]
  - Uterine contractions during pregnancy [Recovered/Resolved]
  - Caesarean section [Recovered/Resolved]
  - Exposure during pregnancy [Recovered/Resolved]
